FAERS Safety Report 13187389 (Version 2)
Quarter: 2017Q1

REPORT INFORMATION
  Report Type: Report from Study
  Country: BG (occurrence: BG)
  Receive Date: 20170206
  Receipt Date: 20170217
  Transmission Date: 20170428
  Serious: Yes (Hospitalization, Disabling)
  Sender: FDA-Public Use
  Company Number: BG-AMGEN-BGRSL2016171084

PATIENT
  Age: 73 Year
  Sex: Male
  Weight: 53 kg

DRUGS (3)
  1. VECTIBIX [Suspect]
     Active Substance: PANITUMUMAB
     Indication: COLORECTAL CANCER METASTATIC
     Dosage: 400 MG, TWICE MONTHLY
     Route: 042
     Dates: start: 2016
  2. VECTIBIX [Suspect]
     Active Substance: PANITUMUMAB
     Dosage: 400 MG, 2 TIMES MONTHLY
     Route: 042
     Dates: end: 20170117
  3. VECTIBIX [Suspect]
     Active Substance: PANITUMUMAB
     Dosage: 400, TWICE MONTHLY
     Route: 042

REACTIONS (2)
  - Nail discolouration [Not Recovered/Not Resolved]
  - Rash generalised [Not Recovered/Not Resolved]

NARRATIVE: CASE EVENT DATE: 20161117
